FAERS Safety Report 10261915 (Version 1)
Quarter: 2014Q2

REPORT INFORMATION
  Report Type: Spontaneous
  Country: IT (occurrence: IT)
  Receive Date: 20140626
  Receipt Date: 20140626
  Transmission Date: 20141212
  Serious: Yes (Hospitalization, Other)
  Sender: FDA-Public Use
  Company Number: IT-WATSON-2014-13339

PATIENT
  Age: 50 Year
  Sex: Male

DRUGS (5)
  1. RAPAFLO (WATSON LABORATORIES) [Suspect]
     Indication: BENIGN PROSTATIC HYPERPLASIA
     Dosage: 10 DF, SINGLE
     Route: 048
     Dates: start: 20140505, end: 20140505
  2. STILNOX [Suspect]
     Indication: ADJUSTMENT DISORDER WITH DEPRESSED MOOD
     Dosage: 280 MG, SINGLE
     Route: 048
     Dates: start: 20140505, end: 20140505
  3. AVODART [Suspect]
     Indication: BENIGN PROSTATIC HYPERPLASIA
     Dosage: 5 MG, SINGLE
     Route: 048
     Dates: start: 20140505, end: 20140505
  4. RIVOTRIL [Suspect]
     Indication: ADJUSTMENT DISORDER WITH DEPRESSED MOOD
     Dosage: 20 ML, SINGLE
     Route: 048
     Dates: start: 20140505, end: 20140505
  5. ZYPREXA [Suspect]
     Indication: ADJUSTMENT DISORDER WITH DEPRESSED MOOD
     Dosage: 100 MG, SINGLE
     Route: 048
     Dates: start: 20140505, end: 20140505

REACTIONS (5)
  - Toxicity to various agents [Recovered/Resolved]
  - Intentional overdose [Recovered/Resolved]
  - Suicide attempt [Recovered/Resolved]
  - Depressed mood [Recovered/Resolved]
  - Anxiety [Recovered/Resolved]
